FAERS Safety Report 10186857 (Version 3)
Quarter: 2014Q2

REPORT INFORMATION
  Report Type: Report from Study
  Country: BE (occurrence: BE)
  Receive Date: 20140522
  Receipt Date: 20140624
  Transmission Date: 20141212
  Serious: Yes (Life-Threatening, Hospitalization)
  Sender: FDA-Public Use
  Company Number: BE-ROCHE-1276436

PATIENT
  Age: 70 Year
  Sex: Female
  Weight: 51.2 kg

DRUGS (20)
  1. BEVACIZUMAB [Suspect]
     Indication: RECTAL CANCER
     Route: 042
     Dates: start: 20121231
  2. OXALIPLATIN [Suspect]
     Indication: RECTAL CANCER METASTATIC
     Dosage: MODIFIED DE GRAMONT
     Route: 042
     Dates: start: 20121231, end: 2013
  3. 5-FLUOROURACIL [Suspect]
     Indication: RECTAL CANCER METASTATIC
     Route: 042
     Dates: start: 20121231
  4. 5-FLUOROURACIL [Suspect]
     Route: 042
     Dates: start: 20121231
  5. DOCLORMETA [Concomitant]
     Route: 048
  6. TRITACE [Concomitant]
     Indication: HYPERTENSION
     Route: 048
     Dates: start: 2003, end: 2014
  7. TRITACE [Concomitant]
     Route: 048
  8. TENORMIN [Concomitant]
     Indication: HYPERTENSION
     Route: 048
     Dates: start: 2003, end: 2014
  9. TENORMIN [Concomitant]
     Route: 065
  10. GLURENORM [Concomitant]
     Indication: DIABETES MELLITUS
     Route: 048
     Dates: start: 1991
  11. CARDIOASPIRINE [Concomitant]
     Indication: HYPERTENSION
     Route: 048
     Dates: start: 2003
  12. LORAZEPAM [Concomitant]
     Indication: SLEEP DISORDER
     Route: 048
     Dates: start: 2007
  13. GLUCOPHAGE [Concomitant]
     Indication: DIABETES MELLITUS
     Route: 048
     Dates: start: 1991
  14. GLUCOPHAGE [Concomitant]
     Route: 048
  15. UNI-TRANXENE [Concomitant]
     Route: 048
  16. DAFALGAN [Concomitant]
     Route: 065
  17. BRUFEN [Concomitant]
     Route: 048
  18. PANTOMED (BELGIUM) [Concomitant]
     Route: 065
  19. PANTOMED (BELGIUM) [Concomitant]
     Route: 065
  20. REMERGON [Concomitant]
     Route: 048

REACTIONS (8)
  - Jugular vein thrombosis [Not Recovered/Not Resolved]
  - Nausea [Recovered/Resolved]
  - Vomiting [Recovered/Resolved]
  - C-reactive protein increased [Recovered/Resolved]
  - Hypotension [Recovered/Resolved]
  - Pyrexia [Unknown]
  - Cough [Unknown]
  - White blood cells urine positive [Unknown]
